FAERS Safety Report 15732926 (Version 2)
Quarter: 2019Q1

REPORT INFORMATION
  Report Type: Report from Study
  Country: JP (occurrence: JP)
  Receive Date: 20181218
  Receipt Date: 20190206
  Transmission Date: 20190417
  Serious: Yes (Hospitalization, Other)
  Sender: FDA-Public Use
  Company Number: JP-ALXN-A201816169AA

PATIENT

DRUGS (12)
  1. L CARNITIN                         /00878602/ [Concomitant]
     Indication: HYPOPHOSPHATASIA
     Dosage: 1.5 ML, TID
     Route: 048
  2. ALFAROL [Concomitant]
     Active Substance: ALFACALCIDOL
     Indication: HYPOPHOSPHATASIA
     Dosage: 1.5 ML, QD
     Route: 048
     Dates: start: 20180418
  3. HYALEIN [Concomitant]
     Active Substance: HYALURONATE SODIUM
     Indication: PROPHYLAXIS
     Dosage: GUTTAE, 2-4 TIMES DAILY
     Route: 031
  4. ADEROXAL [Concomitant]
     Active Substance: PYRIDOXAL PHOSPHATE
     Indication: HYPOPHOSPHATASIA
     Dosage: 0.854 G, TID
     Route: 048
  5. EMLA [Concomitant]
     Active Substance: LIDOCAINE\PRILOCAINE
     Dosage: 2 DF, TIW
     Route: 062
     Dates: start: 20180525
  6. STRENSIQ [Suspect]
     Active Substance: ASFOTASE ALFA
     Indication: HYPOPHOSPHATASIA
     Dosage: 2 MG/KG, TIW
     Route: 058
     Dates: start: 20150925
  7. BIOFERMIN                          /01617201/ [Concomitant]
     Active Substance: BACILLUS SUBTILIS\LACTOBACILLUS ACIDOPHILUS\STREPTOCOCCUS FAECAIS
     Indication: HYPOPHOSPHATASIA
     Dosage: 0.3 G, TID
     Route: 048
  8. HIRUDOID                           /00723701/ [Concomitant]
     Active Substance: PENTOSAN POLYSULFATE SODIUM
     Indication: PROPHYLAXIS
     Dosage: 1.2 G, BID
  9. PHENOBAL                           /00023201/ [Concomitant]
     Active Substance: PHENOBARBITAL
     Indication: HYPOPHOSPHATASIA
     Dosage: 0.3 G, BID
     Route: 048
  10. GLUCONSAN K [Concomitant]
     Active Substance: POTASSIUM GLUCONATE
     Indication: HYPOPHOSPHATASIA
     Dosage: 1.6 G, TID
     Route: 048
  11. THYRADIN S [Concomitant]
     Active Substance: LEVOTHYROXINE SODIUM
     Indication: HYPOPHOSPHATASIA
     Dosage: 0.3 G, QD
     Route: 048
  12. EMLA [Concomitant]
     Active Substance: LIDOCAINE\PRILOCAINE
     Indication: PROPHYLAXIS
     Dosage: 0.1 G, TIW
     Dates: end: 20180523

REACTIONS (11)
  - Anal abscess [Not Recovered/Not Resolved]
  - Immediate post-injection reaction [Not Recovered/Not Resolved]
  - Oxygen saturation decreased [Recovered/Resolved]
  - Seizure [Recovered/Resolved]
  - Bone deformity [Unknown]
  - Lower respiratory tract infection [Recovered/Resolved]
  - Flushing [Not Recovered/Not Resolved]
  - Bronchitis [Recovered/Resolved]
  - Oxygen saturation decreased [Recovered/Resolved]
  - Talipes [Unknown]
  - Erythema [Not Recovered/Not Resolved]

NARRATIVE: CASE EVENT DATE: 201708
